FAERS Safety Report 8795915 (Version 3)
Quarter: 2013Q2

REPORT INFORMATION
  Report Type: Spontaneous
  Country: US (occurrence: US)
  Receive Date: 20120919
  Receipt Date: 20130508
  Transmission Date: 20140414
  Serious: Yes (Other)
  Sender: FDA-Public Use
  Company Number: US-PFIZER INC-2012230106

PATIENT
  Age: 58 Year
  Sex: Female
  Weight: 116 kg

DRUGS (16)
  1. LYRICA [Suspect]
     Indication: FIBROMYALGIA
     Dosage: 300 MG, 2X/DAY
     Route: 048
  2. DILANTIN [Concomitant]
     Indication: EPILEPSY
     Dosage: UNK
  3. DILANTIN [Concomitant]
     Dosage: 200 MG,1 2X/DAY
  4. ZARONTIN [Concomitant]
     Indication: PETIT MAL EPILEPSY
     Dosage: 250 MG, 2X/DAY
  5. ZARONTIN [Concomitant]
     Dosage: 250 MG, 2-2XDAY
  6. HYDROCHLOROTHIAZIDE [Concomitant]
     Indication: OEDEMA PERIPHERAL
     Dosage: 50 MG, 1X/DAY (1 IN AM)
  7. PHENYTEK [Concomitant]
     Indication: GRAND MAL CONVULSION
     Dosage: 200 MG, 2X/DAY
  8. ZOLOFT [Concomitant]
     Indication: DEPRESSION
     Dosage: 100 MG, 2 IN AM
  9. XANAX [Concomitant]
     Indication: ANXIETY
     Dosage: 5 MG, AS NEEDED
  10. DICLOFENAC [Concomitant]
     Indication: INFLAMMATION
     Dosage: 75 MG, 2X/DAY
  11. TROSPIUM CHLORIDE [Concomitant]
     Indication: HYPERTONIC BLADDER
     Dosage: 20 MG, 2X/DAY
  12. AROMASIN [Concomitant]
     Indication: AROMATASE INHIBITION THERAPY
     Dosage: 25 MG, 1 IN AM
  13. NIFEDIPINE [Concomitant]
     Indication: RAYNAUD^S PHENOMENON
     Dosage: 30 MG, 1 IN AM
  14. VICODIN [Concomitant]
     Indication: BACK DISORDER
     Dosage: 7.5 MG, AS NEEDED
  15. TRAZODONE [Concomitant]
     Indication: SLEEP DISORDER
     Dosage: 50 MG, 1 IN PRN
  16. VOLTAREN [Concomitant]
     Indication: ARTHRALGIA
     Dosage: GEL 1 % AS NEEDED

REACTIONS (2)
  - Breast cancer [Unknown]
  - Breast haemorrhage [Unknown]
